FAERS Safety Report 4319614-2 (Version None)
Quarter: 2004Q1

REPORT INFORMATION
  Report Type: 
  Country: None (occurrence: None)
  Receive Date: 20040316
  Receipt Date: 20040229
  Transmission Date: 20041129
  Serious: Yes (Hospitalization)
  Sender: FDA-Public Use
  Company Number: US_0402100684

PATIENT
  Age: 56 Year
  Sex: Male

DRUGS (11)
  1. VANCOMYCIN [Suspect]
     Indication: OSTEOMYELITIS
     Dosage: 1 G/2 DAY
  2. CIPROFLOXACIN [Concomitant]
  3. INSULIN GLARGINE [Concomitant]
  4. ROSIGLITAZONE MALEATE [Concomitant]
  5. CLOPIDOGREL [Concomitant]
  6. RAMIPRIL [Concomitant]
  7. DIPHENHYDRAMINE HCL [Concomitant]
  8. PIPERACILLIN SODIUM W/TAZOBACTAM SODIUM [Concomitant]
  9. FLUCONAZOLE [Concomitant]
  10. LINEZOLID [Concomitant]
  11. METRONIDAZOLE [Concomitant]

REACTIONS (34)
  - ABNORMAL BEHAVIOUR [None]
  - ACINETOBACTER INFECTION [None]
  - AGGRESSION [None]
  - BLOOD ALBUMIN DECREASED [None]
  - BLOOD ALKALINE PHOSPHATASE INCREASED [None]
  - BLOOD CULTURE POSITIVE [None]
  - BODY TEMPERATURE INCREASED [None]
  - CANDIDIASIS [None]
  - CULTURE WOUND POSITIVE [None]
  - DELIRIUM [None]
  - DERMATITIS BULLOUS [None]
  - ENTEROCOCCAL INFECTION [None]
  - EOSINOPHIL COUNT ABNORMAL [None]
  - ERYTHEMA MULTIFORME [None]
  - EYELID OEDEMA [None]
  - HALLUCINATIONS, MIXED [None]
  - HYPERSENSITIVITY [None]
  - LABORATORY TEST ABNORMAL [None]
  - NAUSEA [None]
  - PALLOR [None]
  - PARANOIA [None]
  - PATHOGEN RESISTANCE [None]
  - PERSECUTORY DELUSION [None]
  - PSYCHOMOTOR HYPERACTIVITY [None]
  - PSYCHOTIC DISORDER [None]
  - RASH ERYTHEMATOUS [None]
  - RASH PRURITIC [None]
  - RED BLOOD CELL SEDIMENTATION RATE INCREASED [None]
  - SKIN WARM [None]
  - STAPHYLOCOCCAL INFECTION [None]
  - STRABISMUS [None]
  - TACHYCARDIA [None]
  - VASCULITIS [None]
  - WHITE BLOOD CELL COUNT INCREASED [None]
